FAERS Safety Report 25134210 (Version 1)
Quarter: 2025Q1

REPORT INFORMATION
  Report Type: Spontaneous
  Country: PL (occurrence: PL)
  Receive Date: 20250328
  Receipt Date: 20250328
  Transmission Date: 20250409
  Serious: Yes (Other)
  Sender: MYLAN
  Company Number: PL-SUN PHARMACEUTICAL INDUSTRIES LTD-2025RR-499561

PATIENT
  Age: 73 Year
  Sex: Female

DRUGS (2)
  1. METFORMIN [Suspect]
     Active Substance: METFORMIN HYDROCHLORIDE
     Indication: Type 2 diabetes mellitus
  2. INSULIN NOS [Suspect]
     Active Substance: INSULIN NOS
     Indication: Type 2 diabetes mellitus
     Dosage: 100 INTERNATIONAL UNIT,QD,(DAILY)

REACTIONS (2)
  - Diabetic nephropathy [Unknown]
  - Neuropathy peripheral [Unknown]
